FAERS Safety Report 5569320-1 (Version None)
Quarter: 2007Q4

REPORT INFORMATION
  Report Type: 
  Country: None (occurrence: None)
  Receive Date: 20071220
  Receipt Date: 20071030
  Transmission Date: 20080405
  Serious: No
  Sender: FDA-Public Use
  Company Number: A0689573A

PATIENT
  Age: 79 Year
  Sex: Male

DRUGS (5)
  1. AVODART [Suspect]
     Dosage: .5MG ALTERNATE DAYS
     Route: 048
     Dates: start: 20070828
  2. CHLORDIAZEPOXID [Concomitant]
  3. TRAZODONE HCL [Concomitant]
  4. TEMAZEPAM [Concomitant]
  5. CLONIDINE [Concomitant]

REACTIONS (2)
  - DIZZINESS [None]
  - VISUAL FIELD DEFECT [None]
